FAERS Safety Report 9013646 (Version 1)
Quarter: 2013Q1

REPORT INFORMATION
  Report Type: Spontaneous
  Country: US (occurrence: None)
  Receive Date: 20130109
  Receipt Date: 20130109
  Transmission Date: 20140127
  Serious: Yes (Hospitalization)
  Sender: FDA-Public Use
  Company Number: None

PATIENT
  Age: 62 Year
  Sex: Male
  Weight: 51.3 kg

DRUGS (1)
  1. WARFARIN [Suspect]
     Indication: DEEP VEIN THROMBOSIS
     Dosage: MG  PO
     Route: 048
     Dates: start: 20121019

REACTIONS (3)
  - Haematuria [None]
  - International normalised ratio increased [None]
  - Blood creatine increased [None]
